FAERS Safety Report 4625128-2 (Version None)
Quarter: 2005Q2

REPORT INFORMATION
  Report Type: 
  Country: None (occurrence: None)
  Receive Date: 20050401
  Receipt Date: 20050323
  Transmission Date: 20051028
  Serious: Yes (Hospitalization)
  Sender: FDA-Public Use
  Company Number: A0551165A

PATIENT
  Age: 60 Year
  Sex: Female
  Weight: 111.4 kg

DRUGS (3)
  1. TUMS [Suspect]
     Indication: DRUG USE FOR UNKNOWN INDICATION
     Route: 048
  2. TOPROL-XL [Concomitant]
  3. GLUCOTROL [Concomitant]

REACTIONS (1)
  - CORONARY ARTERY OCCLUSION [None]
